FAERS Safety Report 14103409 (Version 2)
Quarter: 2017Q4

REPORT INFORMATION
  Report Type: Report from Study
  Country: US (occurrence: BR)
  Receive Date: 20171018
  Receipt Date: 20171031
  Transmission Date: 20180321
  Serious: Yes (Hospitalization, Other)
  Sender: FDA-Public Use
  Company Number: US-SUNOVION-2017SUN004505

PATIENT
  Age: 69 Year
  Sex: Male
  Weight: 65 kg

DRUGS (3)
  1. FLUIMUCIL [Concomitant]
     Active Substance: ACETYLCYSTEINE
  2. OXYGEN. [Concomitant]
     Active Substance: OXYGEN
  3. INDACATEROL AND GLYCOPYRROLATE [Suspect]
     Active Substance: GLYCOPYRROLATE\INDACATEROL MALEATE
     Indication: EMPHYSEMA
     Dosage: (REGIMEN #1) ULTIBRO BREEZHALER (INDACATEROL, GLYCOPYRRONIUM BROMIDE), 110/50 OT, 1 DF, QD
     Route: 055
     Dates: start: 201707

REACTIONS (4)
  - Weight decreased [Unknown]
  - Pulmonary embolism [Unknown]
  - Dyspnoea [Unknown]
  - Pericardial effusion [Unknown]

NARRATIVE: CASE EVENT DATE: 20170919
